FAERS Safety Report 7760287-4 (Version None)
Quarter: 2011Q3

REPORT INFORMATION
  Report Type: 
  Country: None (occurrence: None)
  Receive Date: 20110919
  Receipt Date: 20110913
  Transmission Date: 20111222
  Serious: Yes (Death)
  Sender: FDA-Public Use
  Company Number: US-PFIZER INC-2011193672

PATIENT
  Sex: Male

DRUGS (7)
  1. REVATIO [Suspect]
     Indication: PULMONARY FIBROSIS
     Dosage: 20 MG, 3X/DAY
     Route: 048
     Dates: start: 20101021, end: 20110822
  2. ALBUTEROL [Concomitant]
  3. REVATIO [Suspect]
     Indication: PULMONARY ARTERIAL HYPERTENSION
  4. AMBRISENTAN [Concomitant]
     Indication: PULMONARY ARTERIAL HYPERTENSION
     Dosage: 10 MG, 1X/DAY
     Dates: end: 20110822
  5. LISINOPRIL [Concomitant]
  6. PREDNISONE [Concomitant]
     Indication: DYSPNOEA
     Dosage: UNK
     Dates: end: 20110822
  7. LASIX [Concomitant]
     Indication: OEDEMA
     Dosage: UNK
     Dates: end: 20110822

REACTIONS (2)
  - RESPIRATORY FAILURE [None]
  - MULTI-ORGAN FAILURE [None]
